FAERS Safety Report 14940278 (Version 5)
Quarter: 2018Q4

REPORT INFORMATION
  Report Type: Report from Study
  Country: CO (occurrence: CO)
  Receive Date: 20180525
  Receipt Date: 20181227
  Transmission Date: 20190204
  Serious: Yes (Other)
  Sender: FDA-Public Use
  Company Number: CO-SA-2017SA260368

PATIENT
  Age: 53 Year
  Sex: Female

DRUGS (1)
  1. ALEMTUZUMAB [Suspect]
     Active Substance: ALEMTUZUMAB
     Indication: MULTIPLE SCLEROSIS
     Dosage: 12 MG,QD
     Route: 041
     Dates: start: 20171115, end: 20171117

REACTIONS (16)
  - Leukocyturia [Not Recovered/Not Resolved]
  - Nitrite urine present [Not Recovered/Not Resolved]
  - Haematuria [Not Recovered/Not Resolved]
  - Urinary sediment present [Not Recovered/Not Resolved]
  - Bacteriuria [Not Recovered/Not Resolved]
  - pH urine increased [Recovered/Resolved]
  - Lymphocyte percentage decreased [Recovered/Resolved]
  - Proteinuria [Recovered/Resolved]
  - Urobilinogen urine [Recovered/Resolved]
  - Crystal urine present [Recovered/Resolved]
  - Blood creatinine increased [Recovered/Resolved]
  - Lymphocyte count decreased [Not Recovered/Not Resolved]
  - Urinary tract infection bacterial [Not Recovered/Not Resolved]
  - Crystalluria [Recovered/Resolved]
  - Neutrophil percentage increased [Recovered/Resolved]
  - White blood cell count decreased [Recovered/Resolved]

NARRATIVE: CASE EVENT DATE: 20171214
